FAERS Safety Report 7654837-6 (Version None)
Quarter: 2011Q3

REPORT INFORMATION
  Report Type: 
  Country: None (occurrence: None)
  Receive Date: 20110729
  Receipt Date: 20110718
  Transmission Date: 20111222
  Serious: Yes (Hospitalization, Other)
  Sender: FDA-Public Use
  Company Number: 2010SP062524

PATIENT
  Age: 19 Year
  Sex: Female
  Weight: 54.4316 kg

DRUGS (1)
  1. NUVARING [Suspect]
     Indication: CONTRACEPTION
     Dosage: QM
     Dates: start: 20090728, end: 20100715

REACTIONS (13)
  - DEEP VEIN THROMBOSIS [None]
  - CHEST PAIN [None]
  - PALPITATIONS [None]
  - WRIST SURGERY [None]
  - COAGULOPATHY [None]
  - PAIN [None]
  - ANXIETY [None]
  - IMPAIRED WORK ABILITY [None]
  - PULMONARY EMBOLISM [None]
  - MULTIPLE INJURIES [None]
  - ANHEDONIA [None]
  - FEAR [None]
  - HYPERCOAGULATION [None]
